FAERS Safety Report 15813748 (Version 1)
Quarter: 2019Q1

REPORT INFORMATION
  Report Type: Spontaneous
  Country: US (occurrence: US)
  Receive Date: 20190111
  Receipt Date: 20190111
  Transmission Date: 20190417
  Serious: Yes (Other)
  Sender: FDA-Public Use
  Company Number: None

PATIENT
  Age: 55 Year
  Sex: Female

DRUGS (17)
  1. ENBREL [Suspect]
     Active Substance: ETANERCEPT
     Indication: RHEUMATOID ARTHRITIS
     Dosage: ?          OTHER FREQUENCY:ONCE WEEKLY;?
     Route: 058
     Dates: start: 20160123
  2. ALPRAZOLAM. [Concomitant]
     Active Substance: ALPRAZOLAM
  3. BUPROPION. [Concomitant]
     Active Substance: BUPROPION
  4. NIFEDIPINE. [Concomitant]
     Active Substance: NIFEDIPINE
  5. TRAMADOL. [Concomitant]
     Active Substance: TRAMADOL
  6. ZOLPIDEM [Concomitant]
     Active Substance: ZOLPIDEM\ZOLPIDEM TARTRATE
  7. FOLIC ACID. [Concomitant]
     Active Substance: FOLIC ACID
  8. VENAFAXINE [Concomitant]
  9. ARAVA [Concomitant]
     Active Substance: LEFLUNOMIDE
  10. METHOTREXATE. [Concomitant]
     Active Substance: METHOTREXATE
  11. PROAIR HFA [Concomitant]
     Active Substance: ALBUTEROL SULFATE
  12. ATORVASTATIN [Concomitant]
     Active Substance: ATORVASTATIN
  13. PLAQUENIL [Concomitant]
     Active Substance: HYDROXYCHLOROQUINE SULFATE
  14. CALCIUM [Concomitant]
     Active Substance: CALCIUM
  15. IBUPROFEN. [Concomitant]
     Active Substance: IBUPROFEN
  16. LEUCOVOR [Concomitant]
  17. OMEPRAZOLE. [Concomitant]
     Active Substance: OMEPRAZOLE

REACTIONS (2)
  - Therapy cessation [None]
  - Foot operation [None]

NARRATIVE: CASE EVENT DATE: 20190104
